FAERS Safety Report 7441788-5 (Version None)
Quarter: 2011Q2

REPORT INFORMATION
  Report Type: 
  Country: None (occurrence: None)
  Receive Date: 20110428
  Receipt Date: 20110421
  Transmission Date: 20111010
  Serious: Yes (Other)
  Sender: FDA-Public Use
  Company Number: JP-PFIZER INC-2011084926

PATIENT
  Age: 1 Year
  Sex: Male

DRUGS (3)
  1. MUCODYNE [Concomitant]
     Route: 048
  2. ASVERIN [Concomitant]
     Route: 048
  3. ZITHROMAX [Suspect]
     Dosage: UNK
     Route: 048
     Dates: start: 20110404, end: 20110404

REACTIONS (3)
  - CONVULSION [None]
  - PYREXIA [None]
  - CYANOSIS [None]
